FAERS Safety Report 5722539-9 (Version None)
Quarter: 2008Q2

REPORT INFORMATION
  Report Type: 
  Country: None (occurrence: None)
  Receive Date: 20080429
  Receipt Date: 20070827
  Transmission Date: 20081010
  Serious: No
  Sender: FDA-Public Use
  Company Number: US-ASTRAZENECA-2007UW20398

PATIENT
  Age: 64 Year
  Sex: Female
  Weight: 66.2 kg

DRUGS (3)
  1. NEXIUM [Suspect]
     Indication: GASTROOESOPHAGEAL REFLUX DISEASE
     Route: 048
  2. PRIMIDONE [Concomitant]
  3. DILANTIN [Concomitant]
     Indication: EPILEPSY
     Route: 048

REACTIONS (2)
  - DIARRHOEA [None]
  - HAEMATOCHEZIA [None]
